FAERS Safety Report 14795600 (Version 4)
Quarter: 2018Q2

REPORT INFORMATION
  Report Type: Report from Study
  Country: US (occurrence: US)
  Receive Date: 20180423
  Receipt Date: 20180611
  Transmission Date: 20180711
  Serious: Yes (Other)
  Sender: FDA-Public Use
  Company Number: US-AMGEN-USASL2018038400

PATIENT
  Age: 60 Year
  Sex: Female

DRUGS (1)
  1. REPATHA [Suspect]
     Active Substance: EVOLOCUMAB
     Indication: HYPERCHOLESTEROLAEMIA
     Dosage: 140 MG, Q2WK
     Route: 058
     Dates: start: 20180227, end: 20180401

REACTIONS (17)
  - Dyspnoea [Unknown]
  - Bone pain [Not Recovered/Not Resolved]
  - Injection site erythema [Unknown]
  - Swollen tongue [Unknown]
  - Skin swelling [Unknown]
  - Nausea [Not Recovered/Not Resolved]
  - Pain in extremity [Unknown]
  - Blood glucose increased [Unknown]
  - Influenza like illness [Not Recovered/Not Resolved]
  - Dysphonia [Unknown]
  - Pharyngeal oedema [Unknown]
  - Pain [Not Recovered/Not Resolved]
  - Fatigue [Not Recovered/Not Resolved]
  - Obstructive airways disorder [Unknown]
  - Pyrexia [Unknown]
  - Dizziness [Unknown]
  - Injection site pruritus [Unknown]

NARRATIVE: CASE EVENT DATE: 20180305
